FAERS Safety Report 5100789-2 (Version None)
Quarter: 2006Q3

REPORT INFORMATION
  Report Type: 
  Country: None (occurrence: None)
  Receive Date: 20060906
  Receipt Date: 20060808
  Transmission Date: 20061208
  Serious: Yes (Other)
  Sender: FDA-Public Use
  Company Number: 2006BH012637

PATIENT
  Sex: Female

DRUGS (1)
  1. DIANEAL PD-2 W/ DEXTROSE 2.5% [Suspect]
     Indication: PERITONEAL DIALYSIS
     Dosage: 5 L; IP
     Route: 033

REACTIONS (3)
  - HAEMODIALYSIS [None]
  - PERITONITIS [None]
  - THERAPY NON-RESPONDER [None]
